FAERS Safety Report 6841731-3 (Version None)
Quarter: 2010Q3

REPORT INFORMATION
  Report Type: 
  Country: None (occurrence: None)
  Receive Date: 20100714
  Receipt Date: 20070714
  Transmission Date: 20110219
  Serious: No
  Sender: FDA-Public Use
  Company Number: US-PFIZER INC-2007059486

PATIENT
  Sex: Female
  Weight: 91.3 kg

DRUGS (10)
  1. CHANTIX [Suspect]
     Indication: SMOKING CESSATION THERAPY
     Dates: start: 20070626
  2. DEPAKOTE [Concomitant]
  3. GEODON [Concomitant]
  4. SYNTHROID [Concomitant]
  5. FOSAMAX [Concomitant]
  6. MULTI-VITAMINS [Concomitant]
  7. OPHTHALMOLOGICALS [Concomitant]
  8. FISH OIL [Concomitant]
  9. MULTI-VITAMINS [Concomitant]
  10. OXYGEN [Concomitant]

REACTIONS (7)
  - DIARRHOEA [None]
  - FLATULENCE [None]
  - LACRIMATION INCREASED [None]
  - NAUSEA [None]
  - RHINORRHOEA [None]
  - STRESS [None]
  - VOMITING [None]
